FAERS Safety Report 5080092-X (Version None)
Quarter: 2006Q3

REPORT INFORMATION
  Report Type: 
  Country: None (occurrence: None)
  Receive Date: 20060815
  Receipt Date: 20060801
  Transmission Date: 20061208
  Serious: Yes (Hospitalization, Other)
  Sender: FDA-Public Use
  Company Number: US-NOVOPROD-255813

PATIENT
  Age: 14 Year
  Sex: Male
  Weight: 49 kg

DRUGS (1)
  1. NORDITROPIN [Suspect]
     Indication: BODY HEIGHT BELOW NORMAL
     Dosage: 2.8 MG, UNK
     Route: 058
     Dates: start: 20011024

REACTIONS (3)
  - FALL [None]
  - MEDICAL DEVICE COMPLICATION [None]
  - ULNA FRACTURE [None]
